FAERS Safety Report 9637749 (Version 1)
Quarter: 2013Q4

REPORT INFORMATION
  Report Type: Spontaneous
  Country: SG (occurrence: SG)
  Receive Date: 20131022
  Receipt Date: 20131022
  Transmission Date: 20140711
  Serious: Yes (Hospitalization)
  Sender: FDA-Public Use
  Company Number: SG-PFIZER INC-2013299115

PATIENT
  Age: 72 Year
  Sex: Male
  Weight: 66.9 kg

DRUGS (4)
  1. CARBOPLATIN [Suspect]
     Indication: LUNG NEOPLASM MALIGNANT
     Dosage: 490 MG, CYCLIC
     Route: 042
     Dates: start: 20130104, end: 20130104
  2. ALIMTA [Concomitant]
     Indication: LUNG NEOPLASM MALIGNANT
     Dosage: 800 MG, CYCLIC
     Route: 042
     Dates: start: 20130104, end: 20130104
  3. DEXAMETHASONE [Concomitant]
     Indication: PREMEDICATION
     Dosage: 4 MG, 2X/DAY
     Route: 048
     Dates: start: 20130103, end: 20130104
  4. KYTRIL [Concomitant]
     Indication: ANTIEMETIC SUPPORTIVE CARE
     Dosage: 3 MG, CYCLIC
     Route: 042
     Dates: start: 20130104, end: 20130104

REACTIONS (1)
  - Myocardial infarction [Recovered/Resolved]
